FAERS Safety Report 9560269 (Version 1)
Quarter: 2013Q3

REPORT INFORMATION
  Report Type: Spontaneous
  Country: US (occurrence: US)
  Receive Date: 20130927
  Receipt Date: 20130927
  Transmission Date: 20140515
  Serious: No
  Sender: FDA-Public Use
  Company Number: US-BIOGENIDEC-2013BI049548

PATIENT
  Age: 32 Year
  Sex: Female

DRUGS (4)
  1. TECFIDERA [Suspect]
     Indication: MULTIPLE SCLEROSIS
     Route: 048
     Dates: start: 20130526
  2. NEURONTIN [Concomitant]
     Indication: NEUROPATHY PERIPHERAL
  3. IBUPROFEN [Concomitant]
     Indication: PAIN
  4. TYLENOL COLD [Concomitant]
     Indication: NASOPHARYNGITIS

REACTIONS (3)
  - Heart rate increased [Not Recovered/Not Resolved]
  - Panic attack [Not Recovered/Not Resolved]
  - Anxiety [Not Recovered/Not Resolved]
